FAERS Safety Report 8749631 (Version 2)
Quarter: 2012Q4

REPORT INFORMATION
  Report Type: Spontaneous
  Country: JP (occurrence: None)
  Receive Date: 20120809
  Receipt Date: 20120906
  Transmission Date: 20130627
  Serious: Yes (Other)
  Sender: FDA-Public Use
  Company Number: JP-2012-15959

PATIENT
  Age: 67 Year
  Sex: Female
  Weight: 53 kg

DRUGS (9)
  1. SAMSCA [Suspect]
     Indication: FLUID RETENTION
     Dosage: QAM
     Route: 048
     Dates: start: 20111213, end: 20111224
  2. PREMINENT TABLETS [Suspect]
     Indication: CARDIAC FAILURE
     Route: 048
     Dates: end: 20111218
  3. HALFDIGOXIN (DIGOXIN) TABLET [Concomitant]
  4. TENOMIN (ATENOLOL) TABLET [Concomitant]
  5. TICLOPIDINE HYDROCHLORIDE [Concomitant]
  6. EPLERENONE [Concomitant]
  7. LASIX [Concomitant]
  8. AMOBAN (ZOPICLONE) TABLET [Concomitant]
  9. WARFARIN SODIUM [Concomitant]

REACTIONS (5)
  - Hypotension [None]
  - White blood cell count decreased [None]
  - Thirst [None]
  - Haemoglobin decreased [None]
  - Laboratory test interference [None]
